FAERS Safety Report 23471513 (Version 1)
Quarter: 2024Q1

REPORT INFORMATION
  Report Type: Spontaneous
  Country: US (occurrence: None)
  Receive Date: 20240202
  Receipt Date: 20240202
  Transmission Date: 20240410
  Serious: No
  Sender: FDA-Public Use
  Company Number: None

PATIENT
  Sex: Female

DRUGS (1)
  1. STELARA [Suspect]
     Active Substance: USTEKINUMAB
     Indication: Crohn^s disease
     Dosage: 90MG/1ML  ONCE EVERY 6 WEEKS SUB-Q?
     Route: 058
     Dates: start: 202301

REACTIONS (3)
  - Drug ineffective [None]
  - Constipation [None]
  - Pain [None]
